FAERS Safety Report 4697865-5 (Version None)
Quarter: 2005Q2

REPORT INFORMATION
  Report Type: 
  Country: None (occurrence: None)
  Receive Date: 20050623
  Receipt Date: 20050620
  Transmission Date: 20051028
  Serious: Yes (Hospitalization)
  Sender: FDA-Public Use
  Company Number: 200515722GDDC

PATIENT
  Sex: Female

DRUGS (4)
  1. GEN-INDAPAMIDE [Suspect]
     Route: 048
     Dates: start: 20050606
  2. NORVASC [Concomitant]
  3. VASOTEC [Concomitant]
  4. ATENOLOL [Concomitant]

REACTIONS (1)
  - ANGIONEUROTIC OEDEMA [None]
